FAERS Safety Report 10727792 (Version 1)
Quarter: 2015Q1

REPORT INFORMATION
  Report Type: Spontaneous
  Country: US (occurrence: US)
  Receive Date: 20150121
  Receipt Date: 20150121
  Transmission Date: 20150721
  Serious: Yes (Other)
  Sender: FDA-Public Use
  Company Number: US-GLAXOSMITHKLINE-US2015006762

PATIENT
  Sex: Female

DRUGS (8)
  1. ARICEPT [Concomitant]
     Active Substance: DONEPEZIL HYDROCHLORIDE
  2. ADVAIR HFA [Suspect]
     Active Substance: FLUTICASONE PROPIONATE\SALMETEROL XINAFOATE
     Dosage: 230/21
  3. UNSPECIFIED INHALER [Suspect]
     Active Substance: UNSPECIFIED INGREDIENT
  4. CLOPIDOGREL [Concomitant]
     Active Substance: CLOPIDOGREL BISULFATE
  5. ADVAIR HFA [Suspect]
     Active Substance: FLUTICASONE PROPIONATE\SALMETEROL XINAFOATE
     Indication: ASTHMA
     Dosage: 2 PUFF(S), BID
     Route: 055
     Dates: start: 201407
  6. SEREVENT [Suspect]
     Active Substance: SALMETEROL XINAFOATE
  7. VITAMINS [Concomitant]
     Active Substance: VITAMINS
  8. ADVAIR DISKUS [Suspect]
     Active Substance: FLUTICASONE PROPIONATE\SALMETEROL XINAFOATE
     Indication: ASTHMA
     Dosage: 1 PUFF(S), BID
     Route: 055
     Dates: start: 2005, end: 201412

REACTIONS (6)
  - Drug administration error [Recovered/Resolved]
  - Drug ineffective [Recovered/Resolved]
  - Dementia [Not Recovered/Not Resolved]
  - Secretion discharge [Not Recovered/Not Resolved]
  - Asthma [Not Recovered/Not Resolved]
  - Medication error [Not Recovered/Not Resolved]
